FAERS Safety Report 13945597 (Version 3)
Quarter: 2018Q1

REPORT INFORMATION
  Report Type: Report from Study
  Country: None (occurrence: CA)
  Receive Date: 20170907
  Receipt Date: 20180202
  Transmission Date: 20180508
  Serious: Yes (Hospitalization, Disabling, Other)
  Sender: FDA-Public Use
  Company Number: CA-ABBVIE-17K-028-2091218-00

PATIENT
  Sex: Male

DRUGS (3)
  1. HUMIRA [Suspect]
     Active Substance: ADALIMUMAB
     Indication: CROHN^S DISEASE
     Route: 058
     Dates: start: 20140928, end: 2017
  2. HUMIRA [Suspect]
     Active Substance: ADALIMUMAB
     Route: 058
     Dates: start: 2017, end: 2017
  3. HUMIRA [Suspect]
     Active Substance: ADALIMUMAB
     Route: 058
     Dates: start: 201707

REACTIONS (14)
  - Mobility decreased [Recovered/Resolved]
  - Stoma site oedema [Unknown]
  - Proctalgia [Not Recovered/Not Resolved]
  - Volvulus [Recovering/Resolving]
  - Diverticulum [Recovering/Resolving]
  - Gastrointestinal inflammation [Recovering/Resolving]
  - Abscess intestinal [Not Recovered/Not Resolved]
  - Post procedural complication [Not Recovered/Not Resolved]
  - Gastrointestinal obstruction [Unknown]
  - Weight decreased [Recovering/Resolving]
  - Asthenia [Recovered/Resolved]
  - Appendicectomy [Not Recovered/Not Resolved]
  - Anorectal disorder [Not Recovered/Not Resolved]
  - Abdominal adhesions [Not Recovered/Not Resolved]

NARRATIVE: CASE EVENT DATE: 2017
